FAERS Safety Report 7658901-7 (Version None)
Quarter: 2011Q3

REPORT INFORMATION
  Report Type: 
  Country: None (occurrence: None)
  Receive Date: 20110805
  Receipt Date: 20110804
  Transmission Date: 20111222
  Serious: Yes (Hospitalization)
  Sender: FDA-Public Use
  Company Number: IT-SANOFI-AVENTIS-2011SA048468

PATIENT
  Age: 80 Year
  Sex: Female

DRUGS (3)
  1. PLAVIX [Suspect]
     Route: 048
     Dates: start: 20101001
  2. IMIPENEM AND CILASTATIN SODIUM [Suspect]
     Indication: ESCHERICHIA SEPSIS
     Route: 041
     Dates: start: 20110128, end: 20110202
  3. ASPIRIN [Suspect]
     Route: 048
     Dates: start: 20101001, end: 20110207

REACTIONS (3)
  - DIARRHOEA HAEMORRHAGIC [None]
  - ANAEMIA [None]
  - CLOSTRIDIUM DIFFICILE COLITIS [None]
